FAERS Safety Report 9029639 (Version 2)
Quarter: 2013Q3

REPORT INFORMATION
  Report Type: Report from Study
  Country: ES (occurrence: ES)
  Receive Date: 20130125
  Receipt Date: 20130805
  Transmission Date: 20140515
  Serious: Yes (Other)
  Sender: FDA-Public Use
  Company Number: ES-ELI_LILLY_AND_COMPANY-ES201301004586

PATIENT
  Age: 81 Year
  Sex: Female

DRUGS (2)
  1. TERIPARATIDE [Suspect]
     Indication: OSTEOPOROSIS
     Dosage: 20 UG, QD
     Route: 058
     Dates: start: 20120225, end: 201212
  2. TERIPARATIDE [Suspect]
     Dosage: 20 UG, QD
     Route: 058

REACTIONS (1)
  - Breast cancer [Unknown]
